FAERS Safety Report 16713060 (Version 4)
Quarter: 2019Q3

REPORT INFORMATION
  Report Type: Report from Study
  Country: None (occurrence: IE)
  Receive Date: 20190817
  Receipt Date: 20190913
  Transmission Date: 20191004
  Serious: Yes (Hospitalization)
  Sender: FDA-Public Use
  Company Number: IE-ABBVIE-19P-229-2892149-00

PATIENT
  Age: 59 Year
  Sex: Female

DRUGS (4)
  1. DUODOPA [Suspect]
     Active Substance: CARBIDOPA\LEVODOPA
     Indication: PARKINSON^S DISEASE
     Dosage: CONTINUOUS RATE: 2.4 ML/HR, EXTRA DOSE: 0.5ML
     Route: 050
     Dates: start: 20190728, end: 20190802
  2. DUODOPA [Suspect]
     Active Substance: CARBIDOPA\LEVODOPA
     Dosage: 1 CASSETTE CONTINUOUS RATE 2.6 ML/HR?20MG/ML 5 MG/ML
     Route: 050
     Dates: start: 20190802, end: 2019
  3. DUODOPA [Suspect]
     Active Substance: CARBIDOPA\LEVODOPA
     Dosage: EXTRA DOSE : UNKNOWN 20 MG/ML 5 MG/ML
     Route: 050
     Dates: start: 2019, end: 20190906
  4. DUODOPA [Suspect]
     Active Substance: CARBIDOPA\LEVODOPA
     Dosage: EXTRA DOSE REDUCED TO 0.7ML
     Route: 050
     Dates: start: 20190906

REACTIONS (13)
  - Parkinsonism [Recovering/Resolving]
  - Feeling abnormal [Unknown]
  - Dyskinesia [Not Recovered/Not Resolved]
  - Fall [Unknown]
  - On and off phenomenon [Unknown]
  - Depressed mood [Recovering/Resolving]
  - Stress [Not Recovered/Not Resolved]
  - Drug ineffective [Recovering/Resolving]
  - Suicidal ideation [Recovered/Resolved]
  - On and off phenomenon [Recovering/Resolving]
  - Emotional distress [Unknown]
  - Device issue [Unknown]
  - Hypokinesia [Recovering/Resolving]

NARRATIVE: CASE EVENT DATE: 2019
